FAERS Safety Report 11748947 (Version 3)
Quarter: 2016Q1

REPORT INFORMATION
  Report Type: Spontaneous
  Country: US (occurrence: US)
  Receive Date: 20151118
  Receipt Date: 20160202
  Transmission Date: 20160525
  Serious: No
  Sender: FDA-Public Use
  Company Number: US-AMGEN-USASP2015121072

PATIENT
  Age: 21 Year
  Sex: Male

DRUGS (2)
  1. STRATTERA [Concomitant]
     Active Substance: ATOMOXETINE HYDROCHLORIDE
     Dosage: UNK
  2. ENBREL [Suspect]
     Active Substance: ETANERCEPT
     Indication: PSORIASIS
     Dosage: 50 MG, QWK
     Route: 058
     Dates: start: 20141204

REACTIONS (3)
  - Pyrexia [Unknown]
  - Stress [Unknown]
  - Depression [Unknown]

NARRATIVE: CASE EVENT DATE: 20151225
